FAERS Safety Report 8232459-6 (Version None)
Quarter: 2012Q1

REPORT INFORMATION
  Report Type: 
  Country: None (occurrence: None)
  Receive Date: 20120323
  Receipt Date: 20120309
  Transmission Date: 20120608
  Serious: Yes (Hospitalization, Other)
  Sender: FDA-Public Use
  Company Number: AU-PFIZER INC-2012064835

PATIENT
  Age: 52 Year
  Sex: Female

DRUGS (20)
  1. PREMARIN [Concomitant]
     Indication: MENOPAUSE
     Dosage: 0.625 MG, UNK
  2. VALACICLOVIR [Concomitant]
     Indication: HERPES ZOSTER
     Dosage: UNK
  3. VENLAFAXINE HCL [Suspect]
     Indication: STRESS AT WORK
     Dosage: 300 MG DAILY
  4. PAROXETINE HCL [Suspect]
     Indication: STRESS AT WORK
     Dosage: 60 MG/DAY
  5. SIMVASTATIN [Concomitant]
     Indication: PRODUCT USED FOR UNKNOWN INDICATION
     Dosage: UNK
  6. METOCLOPRAMIDE HYDROCHLORIDE [Concomitant]
     Indication: PRODUCT USED FOR UNKNOWN INDICATION
     Dosage: INTERMITTENT
  7. LEVOTHYROXINE SODIUM [Concomitant]
     Indication: PRODUCT USED FOR UNKNOWN INDICATION
     Dosage: 100 MG, 1X/DAY
  8. FLUOXETINE HYDROCHLORIDE [Suspect]
     Indication: STRESS AT WORK
     Dosage: UNK
  9. PRAVASTATIN SODIUM [Concomitant]
     Indication: PRODUCT USED FOR UNKNOWN INDICATION
     Dosage: 40 MG, UNK
  10. IRBESARTAN [Concomitant]
     Indication: HYPERTENSION
     Dosage: 300 MG, 1X/DAY
  11. FLUTICASONE PROPIONATE/SALMETEROL [Concomitant]
     Indication: PRODUCT USED FOR UNKNOWN INDICATION
     Dosage: UNK
  12. TRAMADOL HYDROCHLORIDE [Concomitant]
     Indication: SOMATOFORM DISORDER
     Dosage: UNK
  13. CELECOXIB [Concomitant]
     Indication: SOMATOFORM DISORDER
     Dosage: 200 MG AD LIB
  14. DIAZEPAM [Concomitant]
     Indication: PRODUCT USED FOR UNKNOWN INDICATION
     Dosage: 5 MG, AS NEEDED
  15. PENICILLIN [Concomitant]
     Indication: PRODUCT USED FOR UNKNOWN INDICATION
     Dosage: UNK
  16. CITALOPRAM [Suspect]
     Indication: STRESS AT WORK
     Dosage: TITRATED UP TO 60 MG, 1X/DAY
  17. ATORVASTATIN CALCIUM [Concomitant]
     Indication: BLOOD CHOLESTEROL INCREASED
     Dosage: SOMETIMES
  18. TENORMIN [Concomitant]
     Indication: PRODUCT USED FOR UNKNOWN INDICATION
     Dosage: 12.5 MG, 1X/DAY
  19. CEPHALEXIN [Concomitant]
     Indication: PRODUCT USED FOR UNKNOWN INDICATION
     Dosage: UNK
  20. ERYTHROMYCIN [Concomitant]
     Indication: PRODUCT USED FOR UNKNOWN INDICATION
     Dosage: UNK

REACTIONS (3)
  - PHYSICAL ASSAULT [None]
  - OVERDOSE [None]
  - SUICIDAL BEHAVIOUR [None]
